FAERS Safety Report 12403927 (Version 3)
Quarter: 2016Q2

REPORT INFORMATION
  Report Type: Report from Study
  Country: US (occurrence: US)
  Receive Date: 20160525
  Receipt Date: 20160616
  Transmission Date: 20160815
  Serious: Yes (Hospitalization, Other)
  Sender: FDA-Public Use
  Company Number: PHEH2016US012681

PATIENT
  Age: 71 Year
  Sex: Female

DRUGS (2)
  1. SANDIMMUNE [Suspect]
     Active Substance: CYCLOSPORINE
     Dosage: 100 MG, UNK
     Route: 065
  2. SANDIMMUNE [Suspect]
     Active Substance: CYCLOSPORINE
     Indication: PRODUCT USED FOR UNKNOWN INDICATION
     Dosage: UNK
     Route: 065

REACTIONS (7)
  - Fall [Unknown]
  - Upper limb fracture [Unknown]
  - Arthritis [Unknown]
  - Lower limb fracture [Unknown]
  - Liver transplant rejection [Unknown]
  - Hepatitis C [Unknown]
  - Bursitis [Unknown]

NARRATIVE: CASE EVENT DATE: 20151214
